FAERS Safety Report 23636071 (Version 1)
Quarter: 2024Q1

REPORT INFORMATION
  Report Type: Report from Study
  Country: AU (occurrence: AU)
  Receive Date: 20240315
  Receipt Date: 20240315
  Transmission Date: 20240410
  Serious: Yes (Other)
  Sender: FDA-Public Use
  Company Number: AU-UCBSA-2024010839

PATIENT

DRUGS (1)
  1. BIMZELX [Suspect]
     Active Substance: BIMEKIZUMAB-BKZX
     Indication: Psoriasis
     Dosage: UNK

REACTIONS (5)
  - Oesophageal candidiasis [Unknown]
  - Candida infection [Unknown]
  - Vulvovaginal pruritus [Unknown]
  - Oral candidiasis [Unknown]
  - Illness [Unknown]
